FAERS Safety Report 10095544 (Version 1)
Quarter: 2014Q2

REPORT INFORMATION
  Report Type: Spontaneous
  Country: RO (occurrence: RO)
  Receive Date: 20140422
  Receipt Date: 20140422
  Transmission Date: 20141212
  Serious: Yes (Life-Threatening)
  Sender: FDA-Public Use
  Company Number: RO-ROCHE-1381119

PATIENT
  Age: 11 Year
  Sex: Female

DRUGS (3)
  1. ROACTEMRA [Suspect]
     Indication: JUVENILE IDIOPATHIC ARTHRITIS
     Dosage: 240 MG EVERY 2 WEEKS, STRENGTH: 20 MG/ML
     Route: 042
     Dates: start: 20140402, end: 20140402
  2. PREDNISONE [Concomitant]
     Indication: JUVENILE IDIOPATHIC ARTHRITIS
     Dosage: 15 MG/DAY
     Route: 048
     Dates: start: 201204
  3. LEFLUNOMIDE [Concomitant]
     Indication: JUVENILE IDIOPATHIC ARTHRITIS
     Dosage: 10 MG/DAY
     Route: 048
     Dates: start: 20140320

REACTIONS (7)
  - Chills [Recovered/Resolved]
  - Palpitations [Recovered/Resolved]
  - Pallor [Recovered/Resolved]
  - Skin discolouration [Recovered/Resolved]
  - Cyanosis [Recovered/Resolved]
  - Pulse abnormal [Recovered/Resolved]
  - Tachycardia [Recovered/Resolved]
